FAERS Safety Report 5423275-9 (Version None)
Quarter: 2007Q3

REPORT INFORMATION
  Report Type: 
  Country: None (occurrence: None)
  Receive Date: 20070823
  Receipt Date: 20070821
  Transmission Date: 20080115
  Serious: Yes (Life-Threatening)
  Sender: FDA-Public Use
  Company Number: DEWYE199521AUG07

PATIENT
  Sex: Female
  Weight: 79 kg

DRUGS (4)
  1. VENLAFAXINE HCL [Suspect]
     Indication: SCHIZOAFFECTIVE DISORDER
     Dosage: 150 MG DAILY
     Route: 048
     Dates: start: 20030501
  2. SOLVEX [Concomitant]
     Indication: SCHIZOAFFECTIVE DISORDER
     Dosage: 8 MG DAILY
     Route: 048
     Dates: start: 20050201
  3. LAMOTRIGINE [Concomitant]
     Indication: SCHIZOAFFECTIVE DISORDER
     Dosage: 200 MG DAILY
     Route: 048
     Dates: start: 20051201
  4. SEROQUEL [Suspect]
     Indication: SCHIZOAFFECTIVE DISORDER
     Dosage: 600 MG DAILY
     Route: 048
     Dates: start: 20030501

REACTIONS (1)
  - VOLVULUS [None]
